FAERS Safety Report 6748654-9 (Version None)
Quarter: 2010Q2

REPORT INFORMATION
  Report Type: 
  Country: None (occurrence: None)
  Receive Date: 20100601
  Receipt Date: 20100527
  Transmission Date: 20101027
  Serious: Yes (Life-Threatening, Hospitalization, Other)
  Sender: FDA-Public Use
  Company Number: AT-JNJFOC-20100502628

PATIENT
  Age: 23 Year
  Sex: Male

DRUGS (8)
  1. HALDOL [Suspect]
     Indication: ACUTE PSYCHOSIS
     Route: 030
  2. RISPERDAL [Suspect]
     Indication: DRUG USE FOR UNKNOWN INDICATION
     Route: 048
  3. ZYPREXA [Suspect]
     Indication: DRUG USE FOR UNKNOWN INDICATION
     Route: 065
  4. ZYPREXA [Suspect]
     Route: 065
  5. SEROQUEL [Suspect]
     Indication: DRUG USE FOR UNKNOWN INDICATION
     Route: 065
  6. GEWACALM [Concomitant]
     Route: 065
  7. LOVENOX [Concomitant]
     Route: 058
  8. MARCUMAR [Concomitant]

REACTIONS (4)
  - ANTIPHOSPHOLIPID SYNDROME [None]
  - PNEUMONIA [None]
  - PULMONARY EMBOLISM [None]
  - THROMBOPHLEBITIS SUPERFICIAL [None]
